FAERS Safety Report 19528490 (Version 1)
Quarter: 2021Q3

REPORT INFORMATION
  Report Type: Spontaneous
  Country: US (occurrence: US)
  Receive Date: 20210713
  Receipt Date: 20210713
  Transmission Date: 20211014
  Serious: No
  Sender: FDA-Public Use
  Company Number: US-UNITED THERAPEUTICS-UNT-2021-008214

PATIENT
  Age: 77 Year
  Sex: Female
  Weight: 106.58 kg

DRUGS (5)
  1. TYVASO [Suspect]
     Active Substance: TREPROSTINIL
     Indication: PULMONARY ARTERIAL HYPERTENSION
     Dosage: UNK
     Dates: start: 20210324
  2. TYVASO [Suspect]
     Active Substance: TREPROSTINIL
     Dosage: 18?54 ?G, QID
  3. TYVASO [Suspect]
     Active Substance: TREPROSTINIL
     Dosage: UNK
  4. SILDENAFIL CITRATE. [Concomitant]
     Active Substance: SILDENAFIL CITRATE
     Indication: PRODUCT USED FOR UNKNOWN INDICATION
     Dosage: UNK
     Route: 065
  5. TYVASO [Suspect]
     Active Substance: TREPROSTINIL
     Dosage: UNK

REACTIONS (9)
  - Depression [Unknown]
  - Therapy non-responder [Unknown]
  - Oxygen saturation decreased [Recovered/Resolved]
  - Feeling abnormal [Unknown]
  - Headache [Recovered/Resolved]
  - Wrong technique in device usage process [Unknown]
  - Malaise [Unknown]
  - Dyspnoea [Not Recovered/Not Resolved]
  - Device connection issue [Recovered/Resolved]

NARRATIVE: CASE EVENT DATE: 20210503
